FAERS Safety Report 8306025-8 (Version None)
Quarter: 2012Q2

REPORT INFORMATION
  Report Type: 
  Country: None (occurrence: None)
  Receive Date: 20120423
  Receipt Date: 20120414
  Transmission Date: 20120825
  Serious: Yes (Other)
  Sender: FDA-Public Use
  Company Number: CHPA2012US005360

PATIENT
  Sex: Female

DRUGS (1)
  1. EXCEDRIN (MIGRAINE) [Suspect]
     Dosage: UNK, UNK
     Route: 048
     Dates: start: 20120110, end: 20120110

REACTIONS (3)
  - URINARY TRACT INFECTION [None]
  - PERIPHERAL COLDNESS [None]
  - ABASIA [None]
